FAERS Safety Report 5382057-7 (Version None)
Quarter: 2007Q2

REPORT INFORMATION
  Report Type: 
  Country: None (occurrence: None)
  Receive Date: 20070629
  Receipt Date: 20070308
  Transmission Date: 20071010
  Serious: Yes (Other)
  Sender: FDA-Public Use
  Company Number: PHEH2007US02460

PATIENT
  Age: 51 Year
  Sex: Female

DRUGS (8)
  1. EXJADE [Suspect]
     Indication: IRON OVERLOAD
     Dosage: 1000 MG, QD, ORAL : 500 MG, QD, ORAL
     Route: 048
     Dates: start: 20060301, end: 20061218
  2. EXJADE [Suspect]
     Indication: IRON OVERLOAD
     Dosage: 1000 MG, QD, ORAL : 500 MG, QD, ORAL
     Route: 048
     Dates: start: 20061218, end: 20070103
  3. AMLODIPINE [Concomitant]
  4. FOLIC ACID [Concomitant]
  5. IBUPROFEN [Concomitant]
  6. TYLENOL W/ CODEINE NO. 3 [Concomitant]
  7. NORVASC [Concomitant]
  8. ZOCOR [Concomitant]

REACTIONS (2)
  - BLOOD CREATININE INCREASED [None]
  - BLOOD UREA INCREASED [None]
